FAERS Safety Report 5289408-2 (Version None)
Quarter: 2007Q2

REPORT INFORMATION
  Report Type: 
  Country: None (occurrence: None)
  Receive Date: 20070406
  Receipt Date: 20070326
  Transmission Date: 20071010
  Serious: Yes (Other)
  Sender: FDA-Public Use
  Company Number: PHBS2007TR05437

PATIENT
  Age: 47 Year
  Sex: Female

DRUGS (1)
  1. DICLOFENAC SODIUM [Suspect]
     Indication: BACK PAIN
     Route: 030

REACTIONS (8)
  - EMBOLIA CUTIS MEDICAMENTOSA [None]
  - INJECTION SITE CYST [None]
  - INJECTION SITE NECROSIS [None]
  - INJECTION SITE OEDEMA [None]
  - INJECTION SITE PAIN [None]
  - INJECTION SITE PALLOR [None]
  - INJECTION SITE SCAR [None]
  - RASH ERYTHEMATOUS [None]
